FAERS Safety Report 15241186 (Version 1)
Quarter: 2018Q3

REPORT INFORMATION
  Report Type: Spontaneous
  Country: US (occurrence: US)
  Receive Date: 20180711
  Receipt Date: 20180711
  Transmission Date: 20181010
  Serious: No
  Sender: FDA-Public Use
  Company Number: None

PATIENT
  Age: 50 Year
  Sex: Female

DRUGS (1)
  1. ZEJULA [Suspect]
     Active Substance: NIRAPARIB
     Indication: OVARIAN CANCER
     Dates: start: 20171127

REACTIONS (6)
  - Device related infection [None]
  - Vomiting [None]
  - Pyrexia [None]
  - Dry mouth [None]
  - Fatigue [None]
  - Urinary tract infection [None]
